FAERS Safety Report 15492527 (Version 1)
Quarter: 2018Q4

REPORT INFORMATION
  Report Type: Spontaneous
  Country: US (occurrence: US)
  Receive Date: 20181003
  Receipt Date: 20181003
  Transmission Date: 20190205
  Serious: Yes (Hospitalization)
  Sender: FDA-Public Use
  Company Number: None

PATIENT
  Age: 42 Year
  Sex: Female
  Weight: 77.11 kg

DRUGS (2)
  1. RISPERIDONE. [Suspect]
     Active Substance: RISPERIDONE
  2. BENZTROPINE. [Suspect]
     Active Substance: BENZTROPINE

REACTIONS (11)
  - Muscle rigidity [None]
  - Catatonia [None]
  - Suicide attempt [None]
  - Blood pressure increased [None]
  - Mental impairment [None]
  - Mobility decreased [None]
  - Psychomotor retardation [None]
  - Aspartate aminotransferase increased [None]
  - Psychotic disorder [None]
  - Speech disorder [None]
  - Iron deficiency anaemia [None]

NARRATIVE: CASE EVENT DATE: 20180705
